FAERS Safety Report 18463071 (Version 2)
Quarter: 2020Q4

REPORT INFORMATION
  Report Type: Spontaneous
  Country: NL (occurrence: FR)
  Receive Date: 20201104
  Receipt Date: 20201105
  Transmission Date: 20210114
  Serious: Yes (Death, Hospitalization)
  Sender: FDA-Public Use
  Company Number: FR-FRESENIUS KABI-FK202011389

PATIENT
  Age: 40 Year
  Sex: Female
  Weight: 172 kg

DRUGS (5)
  1. PALBOCICLIB [Suspect]
     Active Substance: PALBOCICLIB
     Indication: BREAST CANCER METASTATIC
     Dosage: UNK
     Route: 065
     Dates: start: 201808, end: 202002
  2. LETROZOLE. [Suspect]
     Active Substance: LETROZOLE
     Indication: BREAST CANCER METASTATIC
     Dosage: UNK
     Route: 065
     Dates: start: 201808, end: 202002
  3. PACLITAXEL (MANUFACTURER UNKNOWN) [Suspect]
     Active Substance: PACLITAXEL
     Indication: BREAST CANCER METASTATIC
     Dosage: 90 MG/M2, CYCLIC
     Route: 042
     Dates: start: 20200424, end: 20200803
  4. PACLITAXEL (MANUFACTURER UNKNOWN) [Suspect]
     Active Substance: PACLITAXEL
     Dosage: 90 MG/M2, CYCLIC (ON DAY1, DAY8, DAY15 EVERY)
     Route: 042
     Dates: start: 202003
  5. LEUPRORELIN [Suspect]
     Active Substance: LEUPROLIDE ACETATE
     Indication: BREAST CANCER METASTATIC
     Dosage: UNK
     Route: 065
     Dates: start: 201808, end: 202002

REACTIONS (7)
  - Generalised oedema [Fatal]
  - Metastases to liver [Unknown]
  - Hepatic failure [Fatal]
  - Acute kidney injury [Fatal]
  - Cell death [Unknown]
  - Anaemia [Unknown]
  - Hepatitis fulminant [Unknown]

NARRATIVE: CASE EVENT DATE: 2019
